FAERS Safety Report 6935219-9 (Version None)
Quarter: 2010Q3

REPORT INFORMATION
  Report Type: 
  Country: None (occurrence: None)
  Receive Date: 20100822
  Receipt Date: 20100818
  Transmission Date: 20110219
  Serious: Yes (Life-Threatening)
  Sender: FDA-Public Use
  Company Number: PHHY2010JP54776

PATIENT
  Age: 61 Year
  Sex: Male

DRUGS (3)
  1. VOLTAREN [Suspect]
     Indication: ANALGESIC THERAPY
     Dosage: UNK
     Route: 054
     Dates: start: 20100817, end: 20100817
  2. PERDIPINE [Concomitant]
     Dosage: UNK
     Route: 042
  3. DORMICUM [Concomitant]
     Dosage: UNK
     Route: 042

REACTIONS (2)
  - CARDIAC ARREST [None]
  - HYPERCALCAEMIA [None]
